FAERS Safety Report 18718209 (Version 2)
Quarter: 2021Q1

REPORT INFORMATION
  Report Type: Report from Study
  Country: KR (occurrence: KR)
  Receive Date: 20210108
  Receipt Date: 20210309
  Transmission Date: 20210419
  Serious: Yes (Hospitalization)
  Sender: FDA-Public Use
  Company Number: KR-JNJFOC-20210102861

PATIENT
  Age: 17 Year
  Sex: Male
  Weight: 48.8 kg

DRUGS (5)
  1. GOLIMUMAB [Suspect]
     Active Substance: GOLIMUMAB
  2. AZATHIOPRINE. [Concomitant]
     Active Substance: AZATHIOPRINE
     Indication: COLITIS ULCERATIVE
     Route: 048
     Dates: start: 20190909
  3. MESALAZINE [Concomitant]
     Active Substance: MESALAMINE
     Indication: COLITIS ULCERATIVE
     Route: 048
     Dates: start: 20190909
  4. GOLIMUMAB [Suspect]
     Active Substance: GOLIMUMAB
     Indication: COLITIS ULCERATIVE
     Route: 058
  5. BOLGRE [Concomitant]
     Indication: PROPHYLAXIS
     Route: 048
     Dates: start: 20191214

REACTIONS (1)
  - Cytomegalovirus colitis [Not Recovered/Not Resolved]

NARRATIVE: CASE EVENT DATE: 20201210
